FAERS Safety Report 7488733-4 (Version None)
Quarter: 2011Q2

REPORT INFORMATION
  Report Type: 
  Country: None (occurrence: None)
  Receive Date: 20110518
  Receipt Date: 20110505
  Transmission Date: 20111010
  Serious: Yes (Other)
  Sender: FDA-Public Use
  Company Number: CH-CELGENEUS-151-21880-11050680

PATIENT
  Age: 59 Year
  Sex: Female
  Weight: 70 kg

DRUGS (8)
  1. MARCOUMAR [Concomitant]
     Indication: ATRIAL FIBRILLATION
     Route: 048
  2. SPIRICORT [Concomitant]
     Indication: MULTIPLE MYELOMA
     Dosage: 5 MILLIGRAM
     Route: 048
  3. AMIODARONE HCL [Concomitant]
     Indication: ATRIAL FLUTTER
  4. METO ZEROK [Concomitant]
     Dosage: 75 MILLIGRAM
     Route: 048
  5. AMIODARONE HCL [Concomitant]
     Indication: ATRIAL FIBRILLATION
     Dosage: 200 MILLIGRAM
     Route: 048
  6. REVLIMID [Suspect]
     Indication: MULTIPLE MYELOMA
     Dosage: 25 MILLIGRAM
     Route: 048
     Dates: start: 20110401, end: 20110420
  7. LASIX [Concomitant]
     Dosage: 40 MILLIGRAM
     Route: 048
  8. MARCOUMAR [Concomitant]
     Indication: ATRIAL FLUTTER

REACTIONS (2)
  - DERMATITIS EXFOLIATIVE [None]
  - RASH [None]
